FAERS Safety Report 13575490 (Version 3)
Quarter: 2017Q4

REPORT INFORMATION
  Report Type: Spontaneous
  Country: JP (occurrence: JP)
  Receive Date: 20170524
  Receipt Date: 20171113
  Transmission Date: 20180320
  Serious: Yes (Life-Threatening, Hospitalization)
  Sender: FDA-Public Use
  Company Number: JP-BAUSCH-BL-2017-017078

PATIENT
  Age: 82 Year
  Sex: Male

DRUGS (4)
  1. GASMOTIN [Concomitant]
     Active Substance: MOSAPRIDE CITRATE
     Indication: PRODUCT USED FOR UNKNOWN INDICATION
     Dates: start: 20170510, end: 20170510
  2. MOVIPREP [Suspect]
     Active Substance: ASCORBIC ACID\POLYETHYLENE GLYCOL 3350\POTASSIUM CHLORIDE\SODIUM ASCORBATE\SODIUM CHLORIDE\SODIUM SULFATE
     Indication: BOWEL PREPARATION
     Route: 048
     Dates: end: 20170511
  3. PURSENNIDE [Concomitant]
     Active Substance: SENNOSIDES A AND B
     Indication: PRODUCT USED FOR UNKNOWN INDICATION
     Dates: start: 20170510, end: 20170510
  4. TAKECAB [Concomitant]
     Active Substance: VONOPRAZAN FUMURATE
     Indication: PRODUCT USED FOR UNKNOWN INDICATION
     Dates: start: 20170501, end: 20170510

REACTIONS (11)
  - Acute myocardial infarction [Recovering/Resolving]
  - Depressed level of consciousness [Recovering/Resolving]
  - Peripheral coldness [Recovering/Resolving]
  - Altered state of consciousness [Recovering/Resolving]
  - Shock [Recovering/Resolving]
  - Bradycardia [Recovering/Resolving]
  - Electrocardiogram ST segment elevation [Recovering/Resolving]
  - Ventricular hypokinesia [Recovering/Resolving]
  - Nausea [Recovering/Resolving]
  - Hypotension [Recovering/Resolving]
  - Asthenia [Recovering/Resolving]

NARRATIVE: CASE EVENT DATE: 20170511
